FAERS Safety Report 6550629-X (Version None)
Quarter: 2010Q1

REPORT INFORMATION
  Report Type: 
  Country: None (occurrence: None)
  Receive Date: 20100122
  Receipt Date: 20100122
  Transmission Date: 20100710
  Serious: Yes (Death)
  Sender: FDA-Public Use
  Company Number: None

PATIENT
  Sex: Male
  Weight: 111.4 kg

DRUGS (2)
  1. BEVACIZUMAB 1670MG LAST DOSE 01/04/2010 [Suspect]
     Indication: RENAL CELL CARCINOMA
     Dosage: 15MG/KG D1 Q21 IV
     Route: 042
     Dates: start: 20100104
  2. BORTEZOMIB 4.1MG LAST DOSE 1/11/2010 [Suspect]
     Indication: RENAL CELL CARCINOMA
     Dosage: 1.8MG/M2  D1 D8 Q 21 IV
     Route: 042
     Dates: start: 20100104, end: 20100111

REACTIONS (2)
  - MALIGNANT NEOPLASM PROGRESSION [None]
  - RENAL CANCER STAGE IV [None]
